FAERS Safety Report 17020557 (Version 2)
Quarter: 2019Q4

REPORT INFORMATION
  Report Type: Spontaneous
  Country: IT (occurrence: IT)
  Receive Date: 20191112
  Receipt Date: 20191129
  Transmission Date: 20200122
  Serious: Yes (Hospitalization, Other)
  Sender: FDA-Public Use
  Company Number: IT-ASTRAZENECA-2019SF58656

PATIENT
  Sex: Female

DRUGS (8)
  1. ARIXTRA [Concomitant]
     Active Substance: FONDAPARINUX SODIUM
     Dosage: 5MG 1 VIAL SUBCUTANEOUS ADMINISTRATION DAILY
     Route: 058
  2. VITAMIN D [Concomitant]
     Active Substance: VITAMIN D NOS
  3. SOLDESAM [Concomitant]
     Active Substance: DEXAMETHASONE
     Dosage: 8 DROPS IN THE MORNING
  4. CALCIUM [Concomitant]
     Active Substance: CALCIUM
  5. TAGRISSO [Suspect]
     Active Substance: OSIMERTINIB
     Indication: NON-SMALL CELL LUNG CANCER STAGE IV
     Route: 048
     Dates: start: 20190517, end: 20191016
  6. KEPPRA [Concomitant]
     Active Substance: LEVETIRACETAM
  7. HALDOL [Concomitant]
     Active Substance: HALOPERIDOL
     Indication: DEPRESSION
     Dosage: 1/2 VIAL INTRAMUSCULAR ADMINISTRATION PER MONTH
     Route: 030
  8. TALOFEN [Concomitant]
     Active Substance: PROMAZINE HYDROCHLORIDE
     Dosage: 10 DROPS IN THE EVENING

REACTIONS (2)
  - Respiratory failure [Unknown]
  - Pneumonia [Unknown]
